FAERS Safety Report 8529710-1 (Version None)
Quarter: 2012Q3

REPORT INFORMATION
  Report Type: 
  Country: None (occurrence: None)
  Receive Date: 20120723
  Receipt Date: 20120716
  Transmission Date: 20120928
  Serious: Yes (Death, Other)
  Sender: FDA-Public Use
  Company Number: US-JNJFOC-20120709850

PATIENT

DRUGS (12)
  1. DOXORUBICIN HYDROCHLORIDE [Suspect]
     Indication: LYMPHOMA AIDS RELATED
     Dosage: ON DAY 1
     Route: 042
  2. CYCLOPHOSPHAMIDE [Suspect]
     Indication: LYMPHOMA AIDS RELATED
     Route: 042
  3. PREDNISONE [Suspect]
     Indication: LYMPHOMA AIDS RELATED
     Dosage: ON DAYS 1-5
     Route: 048
  4. ANTIRETROVIRAL MEDICATIONS [Concomitant]
     Indication: ANTIRETROVIRAL THERAPY
     Route: 065
  5. VINCRISTINE [Suspect]
     Indication: LYMPHOMA AIDS RELATED
     Dosage: NOT MORE THAN 2MG
     Route: 042
  6. NEUPOGEN [Concomitant]
     Indication: PALLIATIVE CARE
     Route: 065
  7. QUINOLONE [Concomitant]
     Indication: NEUTROPHIL COUNT
     Route: 048
  8. UNKNOWN MEDICATION [Concomitant]
     Indication: PALLIATIVE CARE
     Route: 065
  9. RITUXIMAB [Suspect]
     Indication: LYMPHOMA AIDS RELATED
     Route: 042
  10. NEUPOGEN [Concomitant]
     Indication: PALLIATIVE CARE
     Route: 065
  11. UNKNOWN MEDICATION [Concomitant]
     Indication: ANTIFUNGAL PROPHYLAXIS
     Route: 065
  12. PEGFILGRASTIM [Concomitant]
     Indication: PRODUCT USED FOR UNKNOWN INDICATION
     Route: 065

REACTIONS (12)
  - PALMAR-PLANTAR ERYTHRODYSAESTHESIA SYNDROME [None]
  - LYMPHOMA AIDS RELATED [None]
  - UPPER RESPIRATORY TRACT INFECTION [None]
  - B-CELL LYMPHOMA [None]
  - NERVOUS SYSTEM DISORDER [None]
  - INFECTION [None]
  - LYMPHOMA [None]
  - ADVERSE EVENT [None]
  - DIFFUSE LARGE B-CELL LYMPHOMA [None]
  - DRUG INEFFECTIVE [None]
  - MUCOSAL INFECTION [None]
  - DEVICE RELATED INFECTION [None]
